FAERS Safety Report 12286908 (Version 1)
Quarter: 2016Q2

REPORT INFORMATION
  Report Type: Spontaneous
  Country: US (occurrence: US)
  Receive Date: 20160420
  Receipt Date: 20160420
  Transmission Date: 20160815
  Serious: Yes (Hospitalization)
  Sender: FDA-Public Use
  Company Number: US-PURDUE-USA-2016-0130323

PATIENT
  Sex: Female

DRUGS (2)
  1. HYSINGLA ER [Suspect]
     Active Substance: HYDROCODONE BITARTRATE
     Indication: PRODUCT USED FOR UNKNOWN INDICATION
     Dosage: 120 MG, Q24H
     Route: 048
     Dates: start: 201512
  2. DILAUDID [Suspect]
     Active Substance: HYDROMORPHONE HYDROCHLORIDE
     Indication: BREAKTHROUGH PAIN
     Dosage: 6 MG, UNK
     Route: 048

REACTIONS (10)
  - Pain [Unknown]
  - Anxiety [Unknown]
  - Blood pressure increased [Unknown]
  - Drug effect decreased [Unknown]
  - Pneumonia [Unknown]
  - Urinary tract infection [Unknown]
  - Diarrhoea [Unknown]
  - Sepsis [Unknown]
  - Hyperhidrosis [Unknown]
  - Rhinorrhoea [Unknown]
